FAERS Safety Report 6191434-6 (Version None)
Quarter: 2009Q2

REPORT INFORMATION
  Report Type: 
  Country: None (occurrence: None)
  Receive Date: 20090515
  Receipt Date: 20090504
  Transmission Date: 20091009
  Serious: Yes (Hospitalization)
  Sender: FDA-Public Use
  Company Number: US-KINGPHARMUSA00001-K200900546

PATIENT
  Age: 86 Year
  Sex: Female

DRUGS (3)
  1. SEPTRA [Suspect]
     Indication: WOUND INFECTION STAPHYLOCOCCAL
     Dosage: 320/1600 MG, BID
  2. SEPTRA [Suspect]
     Indication: CELLULITIS
  3. LISINOPRIL [Suspect]
     Indication: HYPERTENSION
     Dosage: 20 MG, QD
     Route: 048

REACTIONS (3)
  - DRUG INTERACTION [None]
  - HYPERKALAEMIA [None]
  - VENTRICULAR ARRHYTHMIA [None]
